FAERS Safety Report 7445447-4 (Version None)
Quarter: 2011Q2

REPORT INFORMATION
  Report Type: 
  Country: None (occurrence: None)
  Receive Date: 20110427
  Receipt Date: 20110427
  Transmission Date: 20111010
  Serious: No
  Sender: FDA-Public Use
  Company Number: None

PATIENT
  Sex: Male
  Weight: 75.2971 kg

DRUGS (7)
  1. METFORMIN HCL [Suspect]
     Indication: DIABETES MELLITUS
     Dosage: 500MG BID PO 6 TO 8 WEEKS
     Route: 048
  2. ASPIRIN [Concomitant]
  3. FISH OIL [Concomitant]
  4. MULTI-VITAMIN [Concomitant]
  5. PRESERVISION AREDS MULTIVITAMIN [Concomitant]
  6. LIPITOR [Concomitant]
  7. CIALIS [Concomitant]

REACTIONS (3)
  - ERUCTATION [None]
  - PRODUCT SUBSTITUTION ISSUE [None]
  - DYSPEPSIA [None]
